FAERS Safety Report 17550227 (Version 4)
Quarter: 2020Q2

REPORT INFORMATION
  Report Type: Spontaneous
  Country: NL (occurrence: NL)
  Receive Date: 20200317
  Receipt Date: 20200520
  Transmission Date: 20200713
  Serious: Yes (Death, Other)
  Sender: FDA-Public Use
  Company Number: NL-ASTELLAS-2020US009648

PATIENT
  Age: 72 Year
  Sex: Female

DRUGS (1)
  1. GILTERITINIB [Suspect]
     Active Substance: GILTERITINIB
     Indication: ACUTE MYELOID LEUKAEMIA
     Route: 048
     Dates: start: 20200212, end: 20200306

REACTIONS (4)
  - Aspergillus infection [Not Recovered/Not Resolved]
  - Infection [Fatal]
  - Haemorrhage [Fatal]
  - Pancytopenia [Fatal]

NARRATIVE: CASE EVENT DATE: 20200222
